FAERS Safety Report 5977542-0 (Version None)
Quarter: 2008Q4

REPORT INFORMATION
  Report Type: 
  Country: None (occurrence: None)
  Receive Date: 20081125
  Receipt Date: 20081113
  Transmission Date: 20090506
  Serious: Yes (Hospitalization)
  Sender: FDA-Public Use
  Company Number: 2008SP002877

PATIENT
  Age: 86 Year
  Sex: Female
  Weight: 40.5 kg

DRUGS (11)
  1. XOPENEX [Suspect]
     Indication: CHRONIC OBSTRUCTIVE PULMONARY DISEASE
     Dosage: 1.25 MG/3ML; BID;  INHALATION
     Route: 055
     Dates: start: 20070101
  2. DIGITEK [Concomitant]
  3. OMEPRAZOLE [Concomitant]
  4. TOPROL-XL [Concomitant]
  5. TORSEMIDE [Concomitant]
  6. POTASSIUM CHLORIDE [Concomitant]
  7. ZOLEDRONIC ACID [Concomitant]
  8. DILANTIN  /00017401/ [Concomitant]
  9. PAXIL [Concomitant]
  10. PULMICORT-100 [Concomitant]
  11. FOSAMAX [Concomitant]

REACTIONS (2)
  - FALL [None]
  - HIP FRACTURE [None]
